FAERS Safety Report 24131379 (Version 2)
Quarter: 2024Q3

REPORT INFORMATION
  Report Type: Spontaneous
  Country: FR (occurrence: FR)
  Receive Date: 20240724
  Receipt Date: 20240730
  Transmission Date: 20241016
  Serious: Yes (Disabling)
  Sender: MYLAN
  Company Number: FR-MYLANLABS-2024M1067192

PATIENT
  Age: 91 Year
  Sex: Female
  Weight: 56 kg

DRUGS (1)
  1. ANASTROZOLE [Suspect]
     Active Substance: ANASTROZOLE
     Indication: Breast cancer
     Dosage: 1 DOSAGE FORM, QD  (2 MONTHS BEFORE THE INITIAL REPORT )
     Route: 048
     Dates: start: 202309

REACTIONS (3)
  - Thermal burn [Not Recovered/Not Resolved]
  - Pain [Unknown]
  - Gait disturbance [Unknown]

NARRATIVE: CASE EVENT DATE: 20240601
